FAERS Safety Report 15375183 (Version 1)
Quarter: 2018Q3

REPORT INFORMATION
  Report Type: Spontaneous
  Country: NL (occurrence: NL)
  Receive Date: 20180912
  Receipt Date: 20180912
  Transmission Date: 20181010
  Serious: Yes (Hospitalization)
  Sender: FDA-Public Use
  Company Number: NL-NAPPMUNDI-GBR-2018-0059215

PATIENT
  Age: 75 Year
  Sex: Female
  Weight: 83.5 kg

DRUGS (10)
  1. BETAHISTINE [Suspect]
     Active Substance: BETAHISTINE
     Indication: DIZZINESS
     Dosage: UNK
     Route: 048
     Dates: start: 201711
  2. NOZINAN                            /00038601/ [Concomitant]
     Active Substance: LEVOMEPROMAZINE
     Dosage: UNK
     Route: 048
     Dates: start: 2000
  3. REMERON [Concomitant]
     Active Substance: MIRTAZAPINE
     Indication: ABDOMINAL DISCOMFORT
     Dosage: UNK
     Route: 048
     Dates: start: 1995
  4. ALPRAZOLAM. [Concomitant]
     Active Substance: ALPRAZOLAM
     Indication: SLEEP DISORDER
     Dosage: UNK
  5. OXYCODONE HYDROCHLORIDE. [Suspect]
     Active Substance: OXYCODONE HYDROCHLORIDE
     Indication: DIZZINESS
     Dosage: 10 MG, TID,  (3 X 10 MG)
     Route: 048
     Dates: start: 201801
  6. XANAX [Concomitant]
     Active Substance: ALPRAZOLAM
     Indication: SLEEP DISORDER
     Dosage: UNK
  7. GENTAMICINE [Concomitant]
     Active Substance: GENTAMICIN
  8. XANAX [Concomitant]
     Active Substance: ALPRAZOLAM
     Indication: FEELING OF RELAXATION
  9. ALPRAZOLAM. [Concomitant]
     Active Substance: ALPRAZOLAM
     Indication: FEELING OF RELAXATION
     Dosage: UNK
     Route: 048
     Dates: start: 2000
  10. HUMIRA [Concomitant]
     Active Substance: ADALIMUMAB
     Dosage: UNK UNK, BIW (TWICE WEEKLY), (1)

REACTIONS (11)
  - Balance disorder [Unknown]
  - Hypertension [Unknown]
  - Hypersensitivity [Unknown]
  - Ill-defined disorder [Unknown]
  - Head discomfort [Unknown]
  - Product substitution issue [Unknown]
  - Urinary retention [Recovered/Resolved]
  - Delusion [Recovered/Resolved]
  - Stress [Unknown]
  - Arrhythmia [Unknown]
  - Nervousness [Unknown]

NARRATIVE: CASE EVENT DATE: 201801
